FAERS Safety Report 7469353-4 (Version None)
Quarter: 2011Q2

REPORT INFORMATION
  Report Type: 
  Country: None (occurrence: None)
  Receive Date: 20110510
  Receipt Date: 20110426
  Transmission Date: 20111010
  Serious: Yes (Hospitalization, Other)
  Sender: FDA-Public Use
  Company Number: US-ELI_LILLY_AND_COMPANY-US201104008006

PATIENT
  Sex: Female

DRUGS (10)
  1. FORTEO [Suspect]
     Indication: OSTEOPOROSIS
     Dosage: 20 UG, QD
     Dates: start: 20090601, end: 20090601
  2. KLONOPIN [Concomitant]
     Dosage: 2 DF, BID
  3. FORTEO [Suspect]
     Dosage: 20 UG, QD
     Dates: start: 20110321
  4. LISINOPRIL [Concomitant]
     Dosage: 1 DF, BID
  5. BENTYL [Concomitant]
     Dosage: 1 DF, TID
  6. COREG [Concomitant]
     Indication: CARDIAC DISORDER
     Dosage: 1 DF, BID
  7. PREMARIN [Concomitant]
  8. MICRO-K [Concomitant]
     Dosage: 1 DF, BID
  9. ESTRACE [Concomitant]
     Indication: BLADDER SPHINCTER ATONY
  10. MEGESTROL ACETATE [Concomitant]

REACTIONS (10)
  - SPINAL FRACTURE [None]
  - BACK DISORDER [None]
  - WEIGHT DECREASED [None]
  - OXYGEN SATURATION DECREASED [None]
  - MYOCARDIAL INFARCTION [None]
  - HEADACHE [None]
  - PAIN [None]
  - MYOCARDIAL RUPTURE [None]
  - NAUSEA [None]
  - DECREASED APPETITE [None]
